FAERS Safety Report 9699776 (Version 2)
Quarter: 2013Q4

REPORT INFORMATION
  Report Type: Spontaneous
  Country: US (occurrence: US)
  Receive Date: 20131120
  Receipt Date: 20131127
  Transmission Date: 20140711
  Serious: Yes (Hospitalization)
  Sender: FDA-Public Use
  Company Number: US-GILEAD-2013-0088098

PATIENT
  Sex: Female

DRUGS (5)
  1. LETAIRIS [Suspect]
     Indication: PULMONARY HYPERTENSION
     Dosage: 10 MG, QD
     Dates: start: 20090511
  2. REVATIO [Concomitant]
     Dosage: 20 MG, TID
  3. WARFARIN [Concomitant]
  4. SPIRONOLACTON [Concomitant]
  5. LASIX                              /00032601/ [Concomitant]

REACTIONS (1)
  - Infection [Unknown]
